FAERS Safety Report 19046633 (Version 4)
Quarter: 2021Q3

REPORT INFORMATION
  Report Type: Report from Study
  Country: CA (occurrence: CA)
  Receive Date: 20210323
  Receipt Date: 20210923
  Transmission Date: 20211014
  Serious: Yes (Other)
  Sender: FDA-Public Use
  Company Number: CA-BAYER-2019-175351

PATIENT
  Sex: Male

DRUGS (5)
  1. STIVARGA [Suspect]
     Active Substance: REGORAFENIB
     Indication: COLORECTAL CANCER METASTATIC
     Dosage: DAILY DOSE 160 MG (15?21 DATS)
  2. XELODA [Concomitant]
     Active Substance: CAPECITABINE
  3. STIVARGA [Suspect]
     Active Substance: REGORAFENIB
     Indication: COLORECTAL CANCER METASTATIC
     Dosage: DAILY DOSE 120 MG (8?14 DAYS)
  4. STIVARGA [Suspect]
     Active Substance: REGORAFENIB
     Indication: COLORECTAL CANCER METASTATIC
     Dosage: 80 MG, QD (1?7 DAYS)
  5. FOLFOX [Concomitant]
     Active Substance: FLUOROURACIL\LEUCOVORIN CALCIUM\OXALIPLATIN

REACTIONS (8)
  - Tachycardia [Recovered/Resolved]
  - Haematochezia [Unknown]
  - Off label use [Unknown]
  - Rectal haemorrhage [Recovered/Resolved]
  - Pain [Unknown]
  - Hypoaesthesia [None]
  - Haemorrhage [Recovered/Resolved]
  - Hypotension [Recovered/Resolved]
